FAERS Safety Report 9616274 (Version 27)
Quarter: 2018Q1

REPORT INFORMATION
  Report Type: Report from Study
  Country: US (occurrence: US)
  Receive Date: 20131011
  Receipt Date: 20180215
  Transmission Date: 20180509
  Serious: Yes (Hospitalization, Disabling, Other)
  Sender: FDA-Public Use
  Company Number: US-SA-2013SA098703

PATIENT
  Age: 69 Year
  Sex: Female

DRUGS (22)
  1. AUBAGIO [Suspect]
     Active Substance: TERIFLUNOMIDE
     Indication: MULTIPLE SCLEROSIS
     Route: 048
     Dates: start: 20131108
  2. ASPIRIN. [Concomitant]
     Active Substance: ASPIRIN
  3. OMEPRAZOLE. [Concomitant]
     Active Substance: OMEPRAZOLE
  4. AUBAGIO [Suspect]
     Active Substance: TERIFLUNOMIDE
     Indication: MULTIPLE SCLEROSIS
     Route: 048
     Dates: start: 20170220
  5. ZINC. [Concomitant]
     Active Substance: ZINC
  6. AUBAGIO [Suspect]
     Active Substance: TERIFLUNOMIDE
     Indication: MULTIPLE SCLEROSIS
     Route: 048
     Dates: start: 20121108
  7. AUBAGIO [Suspect]
     Active Substance: TERIFLUNOMIDE
     Indication: MULTIPLE SCLEROSIS
     Route: 048
     Dates: start: 201511, end: 201511
  8. BABY ASPIRIN [Concomitant]
     Active Substance: ASPIRIN
  9. VITAMIN D3 [Concomitant]
     Active Substance: CHOLECALCIFEROL
  10. PRAVASTATIN. [Concomitant]
     Active Substance: PRAVASTATIN
  11. PANTOPRAZOLE [Concomitant]
     Active Substance: PANTOPRAZOLE
  12. VESICARE [Concomitant]
     Active Substance: SOLIFENACIN SUCCINATE
  13. CALCIUM [Concomitant]
     Active Substance: CALCIUM
  14. MAGNESIUM [Concomitant]
     Active Substance: MAGNESIUM
  15. AUBAGIO [Suspect]
     Active Substance: TERIFLUNOMIDE
     Indication: MULTIPLE SCLEROSIS
     Route: 048
     Dates: end: 201602
  16. PLAVIX [Concomitant]
     Active Substance: CLOPIDOGREL BISULFATE
  17. CLOPIDOGREL [Concomitant]
     Active Substance: CLOPIDOGREL BISULFATE
  18. AUBAGIO [Suspect]
     Active Substance: TERIFLUNOMIDE
     Indication: MULTIPLE SCLEROSIS
     Dosage: DRUG TEMPORARILY STOPPED DUE TO REIMBURSEMENT ISSUES.
     Route: 048
     Dates: start: 20121121, end: 20130923
  19. METFORMIN [Concomitant]
     Active Substance: METFORMIN HYDROCHLORIDE
     Dosage: TOTAL OF 2000MG DAILY.
  20. LEVOTHYROXINE. [Concomitant]
     Active Substance: LEVOTHYROXINE
  21. METOPROLOL. [Concomitant]
     Active Substance: METOPROLOL
  22. AUBAGIO [Suspect]
     Active Substance: TERIFLUNOMIDE
     Indication: MULTIPLE SCLEROSIS
     Route: 048
     Dates: end: 201511

REACTIONS (56)
  - Bronchitis [Unknown]
  - Multiple sclerosis relapse [Unknown]
  - Asthenia [Unknown]
  - Bursitis [Unknown]
  - Musculoskeletal pain [Not Recovered/Not Resolved]
  - Arthritis [Not Recovered/Not Resolved]
  - Pulmonary congestion [Not Recovered/Not Resolved]
  - Muscular weakness [Unknown]
  - Nasopharyngitis [Unknown]
  - Inflammation [Unknown]
  - Dysphemia [Unknown]
  - Confusional state [Unknown]
  - Emphysema [Unknown]
  - Gait disturbance [Not Recovered/Not Resolved]
  - Scar [Unknown]
  - Hypothyroidism [Unknown]
  - Anal incontinence [Not Recovered/Not Resolved]
  - Amnesia [Not Recovered/Not Resolved]
  - Paraesthesia [Not Recovered/Not Resolved]
  - Diverticulitis [Unknown]
  - Cough [Unknown]
  - Dyspnoea [Not Recovered/Not Resolved]
  - Memory impairment [Unknown]
  - Depressed mood [Unknown]
  - Dyspnoea [Unknown]
  - Feeling of body temperature change [Not Recovered/Not Resolved]
  - Unevaluable event [Not Recovered/Not Resolved]
  - Road traffic accident [Unknown]
  - Hypoaesthesia [Unknown]
  - Spinal pain [Unknown]
  - Erythema [Unknown]
  - Memory impairment [Not Recovered/Not Resolved]
  - Fatigue [Unknown]
  - Balance disorder [Not Recovered/Not Resolved]
  - Rash [Not Recovered/Not Resolved]
  - Drug dose omission [Unknown]
  - Urinary incontinence [Not Recovered/Not Resolved]
  - Wound [Unknown]
  - Nervous system disorder [Unknown]
  - Hypoaesthesia [Not Recovered/Not Resolved]
  - Nausea [Not Recovered/Not Resolved]
  - Rectal prolapse [Unknown]
  - Bronchial disorder [Not Recovered/Not Resolved]
  - Musculoskeletal stiffness [Unknown]
  - Alopecia [Not Recovered/Not Resolved]
  - Anxiety [Unknown]
  - Vertigo [Unknown]
  - Visual impairment [Recovering/Resolving]
  - Cerebrovascular accident [Recovered/Resolved]
  - Neuropathy peripheral [Not Recovered/Not Resolved]
  - Musculoskeletal stiffness [Not Recovered/Not Resolved]
  - Dry skin [Unknown]
  - Musculoskeletal stiffness [Not Recovered/Not Resolved]
  - Neck pain [Not Recovered/Not Resolved]
  - Hypersensitivity [Unknown]
  - Intentional product misuse [Unknown]

NARRATIVE: CASE EVENT DATE: 20140204
